FAERS Safety Report 4757665-4 (Version None)
Quarter: 2005Q3

REPORT INFORMATION
  Report Type: 
  Country: None (occurrence: None)
  Receive Date: 20050831
  Receipt Date: 20050829
  Transmission Date: 20060218
  Serious: Yes (Other)
  Sender: FDA-Public Use
  Company Number: BR-GLAXOSMITHKLINE-A0572308A

PATIENT
  Sex: Female
  Weight: 55 kg

DRUGS (3)
  1. AEROLIN [Suspect]
     Indication: BRONCHITIS
     Route: 055
     Dates: start: 19970801
  2. DEPAKENE [Concomitant]
     Route: 065
     Dates: start: 20050529
  3. UNSPECIFIED MEDICATION [Concomitant]

REACTIONS (3)
  - CONVULSION [None]
  - FALL [None]
  - WEIGHT INCREASED [None]
